FAERS Safety Report 4889627-0 (Version None)
Quarter: 2006Q1

REPORT INFORMATION
  Report Type: 
  Country: None (occurrence: None)
  Receive Date: 20060124
  Receipt Date: 20051206
  Transmission Date: 20060701
  Serious: Yes (Hospitalization)
  Sender: FDA-Public Use
  Company Number: JP-JPN-A20052995

PATIENT
  Age: 6 Year
  Sex: Male
  Weight: 27 kg

DRUGS (11)
  1. FLUTIDE [Suspect]
     Indication: ASTHMA
     Dosage: 100MCG TWICE PER DAY
     Route: 055
     Dates: start: 20030422, end: 20030506
  2. FLUTIDE [Suspect]
     Dosage: 200MCG PER DAY
     Route: 055
     Dates: start: 20030520, end: 20030529
  3. THEOPHYLLINE [Concomitant]
     Indication: ASTHMA
     Dosage: 300MG PER DAY
     Route: 048
     Dates: start: 20030420
  4. TIPEPIDINE HYBENZATE [Concomitant]
     Indication: UPPER RESPIRATORY TRACT INFLAMMATION
     Dosage: 40MG PER DAY
     Route: 048
     Dates: start: 20030420, end: 20030505
  5. CARBOCISTEINE [Concomitant]
     Indication: UPPER RESPIRATORY TRACT INFLAMMATION
     Dosage: 500MG PER DAY
     Route: 048
     Dates: start: 20030420, end: 20030505
  6. CYPROHEPTADINE HCL [Concomitant]
     Indication: UPPER RESPIRATORY TRACT INFLAMMATION
     Dosage: 4MG PER DAY
     Route: 048
     Dates: start: 20030420, end: 20030505
  7. CEFDITOREN [Concomitant]
     Indication: UPPER RESPIRATORY TRACT INFLAMMATION
     Route: 048
     Dates: start: 20030418, end: 20030429
  8. ENTERONON-R [Concomitant]
     Indication: ENTEROCOLITIS
     Dosage: 1.5G PER DAY
     Route: 048
     Dates: start: 20030418, end: 20030505
  9. EBASTINE [Concomitant]
     Indication: RHINITIS
     Dosage: 5MG PER DAY
     Route: 048
  10. MONTELUKAST SODIUM [Concomitant]
     Indication: ASTHMA
     Dosage: 5MG PER DAY
     Route: 048
     Dates: start: 20020108
  11. FAROPENEM SODIUM [Concomitant]
     Indication: UPPER RESPIRATORY TRACT INFLAMMATION
     Dosage: 450MG PER DAY
     Route: 048
     Dates: start: 20030430, end: 20030505

REACTIONS (2)
  - ASTHMA [None]
  - ORAL CANDIDIASIS [None]
